FAERS Safety Report 14539447 (Version 2)
Quarter: 2018Q1

REPORT INFORMATION
  Report Type: Report from Study
  Country: CO (occurrence: CO)
  Receive Date: 20180216
  Receipt Date: 20180306
  Transmission Date: 20180509
  Serious: Yes (Other)
  Sender: FDA-Public Use
  Company Number: PHHY2017CO069455

PATIENT
  Age: 59 Year
  Sex: Female
  Weight: 80 kg

DRUGS (10)
  1. PEPSAMAR [Concomitant]
     Indication: PRODUCT USED FOR UNKNOWN INDICATION
     Route: 065
  2. RANITIDINE. [Concomitant]
     Active Substance: RANITIDINE
     Indication: PRODUCT USED FOR UNKNOWN INDICATION
     Route: 065
  3. BIOTIN [Concomitant]
     Active Substance: BIOTIN
     Indication: PRODUCT USED FOR UNKNOWN INDICATION
     Route: 065
  4. LOSARTAN. [Suspect]
     Active Substance: LOSARTAN
     Indication: HYPERTENSION
     Route: 065
  5. ESOMEPRAZOLE [Concomitant]
     Active Substance: ESOMEPRAZOLE
     Indication: GASTRITIS
     Route: 065
  6. COLYPAN [Concomitant]
     Active Substance: TRIMEBUTINE MALEATE
     Indication: PRODUCT USED FOR UNKNOWN INDICATION
     Route: 065
  7. GAVISCON [Concomitant]
     Active Substance: ALUMINUM HYDROXIDE\MAGNESIUM CARBONATE
     Indication: PRODUCT USED FOR UNKNOWN INDICATION
     Route: 065
  8. TRASTUZUMAB. [Concomitant]
     Active Substance: TRASTUZUMAB
     Indication: PRODUCT USED FOR UNKNOWN INDICATION
     Dosage: APPLIED EVERY 21 DAYS
     Route: 065
  9. TYKERB [Suspect]
     Active Substance: LAPATINIB DITOSYLATE
     Indication: BREAST CANCER
     Dosage: 250 MG, QID
     Route: 048
     Dates: start: 20161207
  10. VITAMIN A [Concomitant]
     Active Substance: VITAMIN A
     Indication: PRODUCT USED FOR UNKNOWN INDICATION
     Route: 065

REACTIONS (23)
  - Arthralgia [Unknown]
  - Gastritis [Unknown]
  - Abdominal pain upper [Unknown]
  - Headache [Unknown]
  - Rash [Unknown]
  - Onychalgia [Unknown]
  - Acne [Unknown]
  - Vulvovaginal burning sensation [Unknown]
  - Burning sensation [Unknown]
  - Tongue exfoliation [Not Recovered/Not Resolved]
  - Skin burning sensation [Unknown]
  - Oral mucosal exfoliation [Not Recovered/Not Resolved]
  - Nail discolouration [Unknown]
  - Oral mucosal eruption [Unknown]
  - Inflammation [Unknown]
  - Onychoclasis [Unknown]
  - Diarrhoea [Recovering/Resolving]
  - Skin exfoliation [Unknown]
  - Gastrointestinal bacterial infection [Unknown]
  - Breast cancer [Unknown]
  - Malignant neoplasm progression [Unknown]
  - Dyspepsia [Unknown]
  - Ingrowing nail [Recovering/Resolving]

NARRATIVE: CASE EVENT DATE: 20161207
